FAERS Safety Report 4956284-4 (Version None)
Quarter: 2006Q1

REPORT INFORMATION
  Report Type: 
  Country: None (occurrence: None)
  Receive Date: 20060329
  Receipt Date: 20051220
  Transmission Date: 20060701
  Serious: Yes (Death, Hospitalization)
  Sender: FDA-Public Use
  Company Number: NL-AVENTIS-200521186GDDC

PATIENT
  Age: 69 Year
  Sex: Male
  Weight: 67 kg

DRUGS (8)
  1. DOCETAXEL [Suspect]
     Indication: NON-SMALL CELL LUNG CANCER
     Route: 042
     Dates: start: 20051216
  2. CARBOPLATIN [Suspect]
     Indication: NON-SMALL CELL LUNG CANCER
     Route: 042
     Dates: start: 20051216
  3. CODE UNBROKEN [Suspect]
     Indication: NON-SMALL CELL LUNG CANCER
     Dosage: DOSE: 2 CAPSULES
     Route: 048
     Dates: start: 20051216
  4. BISACODY [Concomitant]
     Dosage: DOSE: UNK
  5. METOCLOPRAMIDE [Concomitant]
     Dosage: DOSE: UNK
  6. PANTOPRAZOLE [Concomitant]
     Dosage: DOSE: UNK
  7. LACTULOSE [Concomitant]
     Dosage: DOSE: UNK
  8. ACETAMINOPHEN [Concomitant]
     Dosage: DOSE: UNK

REACTIONS (4)
  - CONSTIPATION [None]
  - PLEURAL EFFUSION [None]
  - RESPIRATORY FAILURE [None]
  - SUBILEUS [None]
